FAERS Safety Report 6766447-3 (Version None)
Quarter: 2010Q2

REPORT INFORMATION
  Report Type: 
  Country: None (occurrence: None)
  Receive Date: 20100611
  Receipt Date: 20100531
  Transmission Date: 20101027
  Serious: Yes (Hospitalization)
  Sender: FDA-Public Use
  Company Number: ES-CELGENEUS-144-CCAZA-09010899

PATIENT
  Sex: Female

DRUGS (9)
  1. AZACITIDINE [Suspect]
     Route: 065
     Dates: start: 20081101
  2. AZACITIDINE [Suspect]
     Route: 065
     Dates: start: 20081204, end: 20081210
  3. AZACITIDINE [Suspect]
     Route: 065
     Dates: start: 20081031
  4. TEICOPLANIN [Suspect]
     Route: 065
     Dates: start: 20081210, end: 20081219
  5. BISOPROLOL [Concomitant]
     Route: 065
  6. VALSARTAN [Concomitant]
     Route: 065
     Dates: start: 20081201, end: 20081211
  7. VALSARTAN [Concomitant]
     Route: 065
  8. VALACYCLOVIR [Concomitant]
     Route: 065
     Dates: start: 20080112, end: 20081112
  9. LEVOFLOXACIN [Concomitant]
     Indication: DRUG USE FOR UNKNOWN INDICATION
     Route: 065
     Dates: start: 20081124, end: 20081211

REACTIONS (2)
  - DERMATITIS ALLERGIC [None]
  - RASH GENERALISED [None]
